FAERS Safety Report 9003751 (Version 1)
Quarter: 2013Q1

REPORT INFORMATION
  Report Type: Spontaneous
  Country: US (occurrence: US)
  Receive Date: 20130108
  Receipt Date: 20130108
  Transmission Date: 20140127
  Serious: No
  Sender: FDA-Public Use
  Company Number: US-GLAXOSMITHKLINE-A0971571A

PATIENT
  Age: 60 Year
  Sex: Female
  Weight: 77.3 kg

DRUGS (10)
  1. LOVAZA [Suspect]
     Indication: BLOOD TRIGLYCERIDES INCREASED
     Dosage: 2CAP TWICE PER DAY
     Route: 048
     Dates: start: 20050329
  2. BABY ASPIRIN [Concomitant]
  3. VITAMINS [Concomitant]
  4. PRILOSEC [Concomitant]
  5. TOPROL XL [Concomitant]
  6. SINGULAR [Concomitant]
  7. ZOLOFT [Concomitant]
  8. TYLENOL PM [Concomitant]
  9. SIMVASTATIN [Concomitant]
  10. MELATONIN [Concomitant]

REACTIONS (2)
  - Diarrhoea [Recovered/Resolved]
  - Product quality issue [Unknown]
